FAERS Safety Report 12731674 (Version 1)
Quarter: 2016Q3

REPORT INFORMATION
  Report Type: Spontaneous
  Country: US (occurrence: US)
  Receive Date: 20160912
  Receipt Date: 20160912
  Transmission Date: 20161109
  Serious: No
  Sender: FDA-Public Use
  Company Number: US-PFIZER INC-2016412254

PATIENT
  Age: 70 Year
  Sex: Female

DRUGS (4)
  1. LIPITOR [Suspect]
     Active Substance: ATORVASTATIN CALCIUM
     Dosage: UNK
  2. ZOCOR [Suspect]
     Active Substance: SIMVASTATIN
     Dosage: UNK
  3. LIVALO [Suspect]
     Active Substance: PITAVASTATIN CALCIUM
     Dosage: UNK
  4. CRESTOR [Suspect]
     Active Substance: ROSUVASTATIN CALCIUM
     Dosage: UNK, 1X/DAY

REACTIONS (4)
  - Drug intolerance [Unknown]
  - Hyperlipidaemia [Unknown]
  - Hypertension [Unknown]
  - Muscle spasms [Unknown]
